FAERS Safety Report 6532782-7 (Version None)
Quarter: 2010Q1

REPORT INFORMATION
  Report Type: 
  Country: None (occurrence: None)
  Receive Date: 20100111
  Receipt Date: 20091231
  Transmission Date: 20100710
  Serious: Yes (Other)
  Sender: FDA-Public Use
  Company Number: PHHY2009KR60152

PATIENT

DRUGS (1)
  1. CLOZAPINE [Suspect]
     Dosage: 3 G, UNK
     Route: 048

REACTIONS (2)
  - OVERDOSE [None]
  - STUPOR [None]
